FAERS Safety Report 20599892 (Version 1)
Quarter: 2022Q1

REPORT INFORMATION
  Report Type: Other
  Country: CN (occurrence: None)
  Receive Date: 20220316
  Receipt Date: 20220316
  Transmission Date: 20220423
  Serious: Yes (Other)
  Sender: FDA-Public Use
  Company Number: CN-Saptalis Pharmaceuticals,LLC-000191

PATIENT
  Age: 62 Year
  Sex: Male

DRUGS (14)
  1. TRIAMCINOLONE ACETONIDE [Suspect]
     Active Substance: TRIAMCINOLONE ACETONIDE
     Indication: Oesophageal stenosis
     Dosage: SINGLE SESSION, INJECTION OF 80 MG
  2. PREDNISONE [Suspect]
     Active Substance: PREDNISONE
     Indication: Oesophageal stenosis
     Dosage: 5 MG ORAL
     Route: 048
  3. TRIAMCINOLONE ACETONIDE [Suspect]
     Active Substance: TRIAMCINOLONE ACETONIDE
     Indication: Prophylaxis
     Dosage: 80 MG?TRIAMCINOLONE ACETONIDE WHICH WAS DILUTED WITH SALINE.
  4. PREDNISONE [Suspect]
     Active Substance: PREDNISONE
     Indication: Prophylaxis
     Dosage: 5MG ORAL
     Route: 048
  5. PREDNISONE [Suspect]
     Active Substance: PREDNISONE
     Indication: Oesophageal stenosis
     Dosage: 10MG ORAL
     Route: 048
  6. PREDNISONE [Suspect]
     Active Substance: PREDNISONE
     Indication: Prophylaxis
     Dosage: 10MG ORAL
     Route: 048
  7. PREDNISONE [Suspect]
     Active Substance: PREDNISONE
     Indication: Oesophageal stenosis
     Dosage: 15MG ORAL
     Route: 048
  8. PREDNISONE [Suspect]
     Active Substance: PREDNISONE
     Indication: Prophylaxis
     Dosage: 15MG ORAL
     Route: 048
  9. PREDNISONE [Suspect]
     Active Substance: PREDNISONE
     Indication: Oesophageal stenosis
     Dosage: 20MG ORAL
     Route: 048
  10. PREDNISONE [Suspect]
     Active Substance: PREDNISONE
     Indication: Prophylaxis
     Dosage: 20MG ORAL
     Route: 048
  11. PREDNISONE [Suspect]
     Active Substance: PREDNISONE
     Indication: Oesophageal stenosis
     Dosage: 25MG ORAL
     Route: 048
  12. PREDNISONE [Suspect]
     Active Substance: PREDNISONE
     Indication: Prophylaxis
     Dosage: 25MG ORAL
     Route: 048
  13. PREDNISONE [Suspect]
     Active Substance: PREDNISONE
     Indication: Oesophageal stenosis
     Dosage: 30MG ORAL
     Route: 048
  14. PREDNISONE [Suspect]
     Active Substance: PREDNISONE
     Indication: Prophylaxis
     Dosage: 30MG ORAL
     Route: 048

REACTIONS (1)
  - Oesophageal haemorrhage [Unknown]
